FAERS Safety Report 11772157 (Version 1)
Quarter: 2015Q4

REPORT INFORMATION
  Report Type: Spontaneous
  Country: US (occurrence: US)
  Receive Date: 20151124
  Receipt Date: 20151124
  Transmission Date: 20160304
  Serious: Yes (Other)
  Sender: FDA-Public Use
  Company Number: US-GLAXOSMITHKLINE-US2014GSK054933

PATIENT
  Sex: Female

DRUGS (4)
  1. XYREM [Suspect]
     Active Substance: SODIUM OXYBATE
     Dosage: UNK
     Route: 048
  2. XYREM [Suspect]
     Active Substance: SODIUM OXYBATE
     Dosage: 9 G, 1D
     Route: 048
     Dates: start: 201205
  3. WELLBUTRIN XL [Suspect]
     Active Substance: BUPROPION HYDROCHLORIDE
     Indication: PRODUCT USED FOR UNKNOWN INDICATION
  4. XYREM [Suspect]
     Active Substance: SODIUM OXYBATE
     Indication: NARCOLEPSY
     Dosage: 5 G, 1D
     Route: 048
     Dates: start: 201002

REACTIONS (7)
  - Fatigue [Unknown]
  - Eye irritation [Unknown]
  - Insomnia [Unknown]
  - Erythema [Unknown]
  - Palmar erythema [Unknown]
  - Generalised tonic-clonic seizure [Unknown]
  - Rebound effect [Unknown]
